FAERS Safety Report 14160087 (Version 1)
Quarter: 2017Q4

REPORT INFORMATION
  Report Type: Report from Study
  Country: US (occurrence: US)
  Receive Date: 20171103
  Receipt Date: 20171103
  Transmission Date: 20180321
  Serious: Yes (Hospitalization)
  Sender: FDA-Public Use
  Company Number: US-SEATTLE GENETICS-2017SGN02697

PATIENT
  Age: 20 Year
  Sex: Male
  Weight: 82.5 kg

DRUGS (3)
  1. BRENTUXIMAB VEDOTIN [Suspect]
     Active Substance: BRENTUXIMAB VEDOTIN
     Indication: HODGKIN^S DISEASE
     Dosage: 1.2 MG/KG, Q2WEEKS
     Route: 042
     Dates: start: 20170825, end: 20171020
  2. DACARBAZINE. [Suspect]
     Active Substance: DACARBAZINE
     Indication: HODGKIN^S DISEASE
     Dosage: 375 MG/M2, Q2WEEKS
     Route: 042
     Dates: start: 20170825, end: 20171020
  3. DOXORUBICIN [Suspect]
     Active Substance: DOXORUBICIN
     Indication: HODGKIN^S DISEASE
     Dosage: UNK
     Dates: start: 20170825, end: 20171020

REACTIONS (2)
  - Pulmonary embolism [Unknown]
  - Lymphopenia [Unknown]

NARRATIVE: CASE EVENT DATE: 20171023
